FAERS Safety Report 4572703-X (Version None)
Quarter: 2005Q1

REPORT INFORMATION
  Report Type: 
  Country: None (occurrence: None)
  Receive Date: 20050208
  Receipt Date: 20041206
  Transmission Date: 20050727
  Serious: No
  Sender: FDA-Public Use
  Company Number: US-GLAXOSMITHKLINE-A0536504A

PATIENT
  Age: 63 Year
  Sex: Female

DRUGS (5)
  1. PAXIL [Suspect]
     Indication: POST-TRAUMATIC STRESS DISORDER
     Dosage: 12.5MG PER DAY
     Route: 048
  2. MULTI-VITAMIN [Concomitant]
  3. VITAMIN E [Concomitant]
  4. DARVOCET [Concomitant]
     Route: 065
  5. BENADRYL [Concomitant]

REACTIONS (3)
  - FATIGUE [None]
  - NAUSEA [None]
  - TREMOR [None]
